FAERS Safety Report 12969661 (Version 1)
Quarter: 2016Q4

REPORT INFORMATION
  Report Type: Spontaneous
  Country: US (occurrence: US)
  Receive Date: 20161123
  Receipt Date: 20161123
  Transmission Date: 20170207
  Serious: Yes (Death)
  Sender: FDA-Public Use
  Company Number: US-PRESTIGE BRANDS -1060007

PATIENT
  Sex: Male

DRUGS (2)
  1. CALDESENE [Suspect]
     Active Substance: TALC\ZINC OXIDE
     Route: 061
  2. TALC [Suspect]
     Active Substance: TALC

REACTIONS (2)
  - Mesothelioma malignant [Fatal]
  - Death [Fatal]

NARRATIVE: CASE EVENT DATE: 20150401
